FAERS Safety Report 10313652 (Version 1)
Quarter: 2014Q3

REPORT INFORMATION
  Report Type: Spontaneous
  Country: SE (occurrence: SE)
  Receive Date: 20140718
  Receipt Date: 20140718
  Transmission Date: 20150326
  Serious: Yes (Hospitalization)
  Sender: FDA-Public Use
  Company Number: SE-ACTAVIS-2014-15354

PATIENT
  Age: 32 Year
  Sex: Male

DRUGS (3)
  1. DIKLOFENAK                         /00372302/ [Concomitant]
     Indication: PRODUCT USED FOR UNKNOWN INDICATION
     Dosage: UNK; ORIFARM GENERIC A/S
     Route: 065
  2. PANODIL [Concomitant]
     Active Substance: ACETAMINOPHEN
     Indication: PRODUCT USED FOR UNKNOWN INDICATION
     Dosage: UNK; PANODIL FORTE
     Route: 048
  3. TRAMADOL ACTAVIS [Suspect]
     Active Substance: TRAMADOL
     Indication: HEADACHE
     Dosage: 2 CAPSULES, PRN
     Route: 065
     Dates: start: 20140621, end: 20140622

REACTIONS (1)
  - Somnolence [Unknown]

NARRATIVE: CASE EVENT DATE: 20140621
